FAERS Safety Report 5823353-6 (Version None)
Quarter: 2008Q3

REPORT INFORMATION
  Report Type: 
  Country: None (occurrence: None)
  Receive Date: 20080725
  Receipt Date: 20080716
  Transmission Date: 20090109
  Serious: Yes (Other)
  Sender: FDA-Public Use
  Company Number: US-JNJFOC-20080501293

PATIENT
  Age: 14 Year
  Sex: Female
  Weight: 56.7 kg

DRUGS (3)
  1. REMICADE [Suspect]
     Indication: JUVENILE ARTHRITIS
     Route: 042
  2. ARAVA [Concomitant]
     Indication: JUVENILE ARTHRITIS
     Route: 048
  3. CELEBREX [Concomitant]
     Indication: JUVENILE ARTHRITIS
     Route: 048

REACTIONS (6)
  - ANTIBODY TEST POSITIVE [None]
  - ARTHRALGIA [None]
  - DYSPNOEA [None]
  - HYPOTENSION [None]
  - INFUSION RELATED REACTION [None]
  - TACHYCARDIA [None]
